FAERS Safety Report 6011350-X (Version None)
Quarter: 2008Q4

REPORT INFORMATION
  Report Type: 
  Country: None (occurrence: None)
  Receive Date: 20081218
  Receipt Date: 20081209
  Transmission Date: 20090506
  Serious: Yes (Disabling)
  Sender: FDA-Public Use
  Company Number: PHHO2008CA14689

PATIENT
  Sex: Male
  Weight: 89 kg

DRUGS (4)
  1. STI571/CGP57148B T35717+CAPS [Suspect]
     Indication: CHRONIC MYELOID LEUKAEMIA
     Dosage: 400MG
     Route: 048
     Dates: start: 20000814
  2. AVAPRO [Concomitant]
  3. MORPHINE [Concomitant]
     Indication: BACK PAIN
  4. NOVOHYDRAZIDE [Concomitant]
     Indication: HYPERTENSION

REACTIONS (3)
  - BRADYCARDIA [None]
  - DIZZINESS [None]
  - HEADACHE [None]
